FAERS Safety Report 17983557 (Version 1)
Quarter: 2020Q3

REPORT INFORMATION
  Report Type: Spontaneous
  Country: CO (occurrence: CO)
  Receive Date: 20200706
  Receipt Date: 20200706
  Transmission Date: 20201103
  Serious: Yes (Hospitalization)
  Sender: FDA-Public Use
  Company Number: CO-PFIZER INC-2020257553

PATIENT
  Age: 49 Year
  Sex: Female

DRUGS (1)
  1. REAMPLA [Suspect]
     Active Substance: PALBOCICLIB
     Dosage: 125 MG, DAILY FOR 3 MONTHS
     Route: 048
     Dates: start: 20200619, end: 2020

REACTIONS (3)
  - Off label use [Unknown]
  - Decreased immune responsiveness [Unknown]
  - Femur fracture [Unknown]

NARRATIVE: CASE EVENT DATE: 20200619
